FAERS Safety Report 3767081 (Version 3)
Quarter: 2015Q2

REPORT INFORMATION
  Report Type: Spontaneous
  Country: JP (occurrence: JP)
  Receive Date: 20020226
  Receipt Date: 20150417
  Transmission Date: 20150821
  Serious: Yes (Hospitalization)
  Sender: FDA-Public Use
  Company Number: PHBS2001JP13107

PATIENT
  Age: 84 Year
  Sex: Male

DRUGS (10)
  1. GLIVEC [Suspect]
     Active Substance: IMATINIB MESYLATE
     Route: 048
     Dates: start: 20020205, end: 20020425
  2. NSAID^S [Concomitant]
     Active Substance: UNSPECIFIED INGREDIENT
  3. NIVADIL [Concomitant]
     Active Substance: NILVADIPINE
  4. GLIVEC [Suspect]
     Active Substance: IMATINIB MESYLATE
     Dosage: 300 MG/DAY
     Route: 048
     Dates: start: 20020122, end: 20020129
  5. GLIVEC [Suspect]
     Active Substance: IMATINIB MESYLATE
     Indication: CHRONIC MYELOID LEUKAEMIA
     Dosage: 400 MG/DAY
     Route: 048
     Dates: start: 20011218, end: 20020121
  6. MUCODYNE [Concomitant]
     Active Substance: CARBOCYSTEINE
     Dates: start: 20011106
  7. LOXONIN [Concomitant]
     Active Substance: LOXOPROFEN SODIUM
     Dates: start: 20011106
  8. ANTIHYPERLIPIDEMIA DRUG [Concomitant]
  9. HYDREA [Concomitant]
     Active Substance: HYDROXYUREA
     Dates: start: 20011108, end: 20011217
  10. GLIVEC [Suspect]
     Active Substance: IMATINIB MESYLATE
     Dosage: 100 MG/DAY
     Route: 048
     Dates: start: 20020205

REACTIONS (7)
  - Eyelid oedema [Recovering/Resolving]
  - Platelet count decreased [Recovered/Resolved]
  - Thrombocytopenia [Recovered/Resolved]
  - Asthma [Recovered/Resolved]
  - Decreased appetite [Recovered/Resolved]
  - Eyelid oedema [Recovered/Resolved]
  - Decreased appetite [Recovering/Resolving]

NARRATIVE: CASE EVENT DATE: 20011224
